FAERS Safety Report 9793232 (Version 1)
Quarter: 2013Q4

REPORT INFORMATION
  Report Type: Spontaneous
  Country: US (occurrence: None)
  Receive Date: 20131231
  Receipt Date: 20131231
  Transmission Date: 20140711
  Serious: Yes (Death)
  Sender: FDA-Public Use
  Company Number: None

PATIENT
  Age: 70 Year
  Sex: Male
  Weight: 82.56 kg

DRUGS (7)
  1. SILDENAFIL [Suspect]
     Indication: ERECTILE DYSFUNCTION
     Route: 048
  2. TADALAFIL 10 MG [Suspect]
     Indication: ERECTILE DYSFUNCTION
     Route: 048
  3. AMLODIPINE [Concomitant]
  4. ATORVASTATIN [Concomitant]
  5. TELMISARTAN-HYDROCHLOROTHIAZIDE (MICARDIS HCT) [Concomitant]
  6. TESTOSTERONE [Concomitant]
  7. TELMISARTAN [Concomitant]

REACTIONS (7)
  - Headache [None]
  - Unresponsive to stimuli [None]
  - Hypopnoea [None]
  - Cardiac arrest [None]
  - Coronary artery disease [None]
  - Cardiomegaly [None]
  - Arrhythmia [None]
